FAERS Safety Report 7293916-2 (Version None)
Quarter: 2011Q1

REPORT INFORMATION
  Report Type: 
  Country: None (occurrence: None)
  Receive Date: 20110215
  Receipt Date: 20110204
  Transmission Date: 20110831
  Serious: No
  Sender: FDA-Public Use
  Company Number: US-JNJFOC-20110202587

PATIENT
  Age: 55 Year
  Sex: Female

DRUGS (3)
  1. INVEGA SUSTENNA [Suspect]
     Route: 030
  2. INVEGA SUSTENNA [Suspect]
     Indication: ILL-DEFINED DISORDER
     Route: 030
  3. INVEGA SUSTENNA [Suspect]
     Route: 030

REACTIONS (3)
  - PRODUCT QUALITY ISSUE [None]
  - INJECTION SITE RASH [None]
  - INCORRECT DOSE ADMINISTERED [None]
